FAERS Safety Report 18904778 (Version 2)
Quarter: 2021Q4

REPORT INFORMATION
  Report Type: Spontaneous
  Country: CA (occurrence: CA)
  Receive Date: 20210217
  Receipt Date: 20211216
  Transmission Date: 20220304
  Serious: Yes (Hospitalization)
  Sender: FDA-Public Use
  Company Number: CA-PFIZER INC-2021143262

PATIENT
  Age: 74 Year
  Sex: Female

DRUGS (22)
  1. ENBREL [Suspect]
     Active Substance: ETANERCEPT
     Route: 065
  2. METHOTREXATE SODIUM [Suspect]
     Active Substance: METHOTREXATE SODIUM
     Route: 065
  3. SULFASALAZINE [Suspect]
     Active Substance: SULFASALAZINE
     Route: 065
  4. ARAVA [Suspect]
     Active Substance: LEFLUNOMIDE
     Route: 065
  5. BIAXIN [Suspect]
     Active Substance: CLARITHROMYCIN
     Route: 065
  6. HUMIRA [Suspect]
     Active Substance: ADALIMUMAB
     Route: 058
  7. ORENCIA [Suspect]
     Active Substance: ABATACEPT
     Dosage: 125 MG, WEEKLY (1 EVERY 1 WEEKS )
     Route: 065
  8. PLAQUENIL [Suspect]
     Active Substance: HYDROXYCHLOROQUINE SULFATE
     Route: 065
  9. CLARITHROMYCIN [Suspect]
     Active Substance: CLARITHROMYCIN
     Route: 065
  10. RABEPRAZOLE SODIUM [Concomitant]
     Active Substance: RABEPRAZOLE SODIUM
     Dosage: 10 MG, 2X/DAY (2 EVERY 1 DAYS )
     Route: 065
  11. RISPERIDONE [Concomitant]
     Active Substance: RISPERIDONE
     Dosage: 5 MG, 2X/DAY (2 EVERY 1 DAYS)
     Route: 065
  12. TYLENOL [Concomitant]
     Active Substance: ACETAMINOPHEN
  13. ALBUTEROL SULFATE [Concomitant]
     Active Substance: ALBUTEROL SULFATE
     Dosage: 2 DF, 1X/DAY (1 EVERY 1 DAYS)
     Route: 065
  14. CANNABIS SATIVA FLOWERING TOP [Concomitant]
     Active Substance: CANNABIS SATIVA FLOWERING TOP
     Dosage: 0.5 MG
     Route: 065
  15. ERGOCALCIFEROL [Concomitant]
     Active Substance: ERGOCALCIFEROL
     Dosage: 1000.0 IU, 1X/DAY (1 EVERY 1 DAYS )
     Route: 065
  16. ACETAMINOPHEN [Concomitant]
     Active Substance: ACETAMINOPHEN
  17. AMLODIPINE [Concomitant]
     Active Substance: AMLODIPINE BESYLATE
     Dosage: 5 MG, 1X/DAY
     Route: 065
  18. APO-ATENIDONE [Concomitant]
     Route: 065
  19. ATORVASTATIN [Concomitant]
     Active Substance: ATORVASTATIN
     Dosage: 10 MG, 1X/DAY
     Route: 065
  20. LANOLIN;MINERAL OIL;PETROLATUM [Concomitant]
  21. MAGNESIUM [Concomitant]
     Active Substance: MAGNESIUM
     Dosage: 500 MG, 1X/DAY
     Route: 065
  22. SYNTHROID [Concomitant]
     Active Substance: LEVOTHYROXINE SODIUM
     Dosage: 0.125 UG, 1X/DAY
     Route: 065

REACTIONS (10)
  - Pneumonia [Unknown]
  - Therapeutic product effect decreased [Unknown]
  - Abdominal pain [Unknown]
  - Drug eruption [Unknown]
  - Drug hypersensitivity [Unknown]
  - Illness [Unknown]
  - Swelling [Unknown]
  - Drug ineffective [Unknown]
  - Hypersensitivity [Unknown]
  - Rash [Unknown]
